FAERS Safety Report 6501853-3 (Version None)
Quarter: 2009Q4

REPORT INFORMATION
  Report Type: 
  Country: None (occurrence: None)
  Receive Date: 20091216
  Receipt Date: 20091208
  Transmission Date: 20100525
  Serious: Yes (Life-Threatening, Other)
  Sender: FDA-Public Use
  Company Number: FR-B.I. PHARMACEUTICALS,INC./RIDGEFIELD-2009-DE-07603GD

PATIENT
  Age: 82 Year
  Sex: Female
  Weight: 45 kg

DRUGS (3)
  1. CLONIDINE [Suspect]
     Indication: NERVE BLOCK
     Dosage: 50 MCG
  2. ROPIVACAINE [Suspect]
     Indication: NERVE BLOCK
     Dosage: 20 ML (0.5%)
  3. MIDAZOLAM HCL [Concomitant]
     Dosage: 2 MG

REACTIONS (6)
  - CARDIAC ARREST [None]
  - COMPLICATION OF DEVICE INSERTION [None]
  - GRAND MAL CONVULSION [None]
  - LOSS OF CONSCIOUSNESS [None]
  - SPEECH DISORDER [None]
  - VENTRICULAR FIBRILLATION [None]
